FAERS Safety Report 7597085-0 (Version None)
Quarter: 2011Q3

REPORT INFORMATION
  Report Type: 
  Country: None (occurrence: None)
  Receive Date: 20110708
  Receipt Date: 20110630
  Transmission Date: 20111222
  Serious: Yes (Other)
  Sender: FDA-Public Use
  Company Number: US-ALEXION-A201100588

PATIENT
  Sex: Male

DRUGS (24)
  1. DIFLUCAN [Concomitant]
     Dosage: 100 MG, QD
  2. DOXYCYCLINE HYCLATE [Concomitant]
     Dosage: 100 MG, BID (1 TABLET Q 12 HOURS)
     Dates: end: 20100607
  3. EXJADE [Concomitant]
     Indication: BLOOD IRON INCREASED
     Dosage: 500 MG (SOLUBLE TABLET), QD
     Route: 048
  4. DOXYCYCLINE HYCLATE [Concomitant]
     Dosage: UNK
     Dates: end: 20100622
  5. ALPHAGAN P [Concomitant]
     Dosage: UNK
  6. CLONAZEPAM [Concomitant]
     Dosage: 0.5 MG, QD
     Route: 048
  7. FAMVIR [Concomitant]
     Dosage: TAKE AS DIRECTED
     Route: 048
     Dates: end: 20100805
  8. LIPITOR [Concomitant]
  9. VITAMIN D [Concomitant]
     Indication: VITAMIN D DECREASED
     Dosage: 50000 IU, Q 4 WEEKS
  10. CYCLOSPORINE [Concomitant]
     Dosage: 200 MG, QD
     Dates: end: 20100805
  11. SOLIRIS [Suspect]
     Dosage: 900 MG, Q2W
     Route: 042
     Dates: start: 20101223
  12. CIPROFLOXACIN HCL [Concomitant]
     Dosage: 500 MG, BID
  13. DESONIDE [Concomitant]
     Dosage: APPLY 1 TOPICAL, PRN
     Route: 061
     Dates: start: 20110301
  14. KLACKS [Concomitant]
     Dosage: UNK
  15. COSOPT [Concomitant]
     Dosage: UNK
  16. NEXIUM [Concomitant]
     Dosage: 20 MG (DELAYED RELEASE), QD
  17. XALATAN [Concomitant]
     Dosage: 1 AT BEDTIME
  18. CYCLOSPORINE [Concomitant]
     Dosage: 400 MG, AC PM
     Route: 048
     Dates: end: 20100609
  19. CITALOPRAM HYDROBROMIDE [Concomitant]
     Dosage: 20 MG, QD
     Route: 048
     Dates: start: 20110301
  20. LEVOXYL [Concomitant]
     Dosage: 125 UG, QD
  21. SOLIRIS [Suspect]
     Indication: PAROXYSMAL NOCTURNAL HAEMOGLOBINURIA
     Dosage: 600 MG, QW
     Route: 042
     Dates: start: 20101029, end: 20101119
  22. EXJADE [Concomitant]
     Dosage: 500 MG, QD
     Dates: end: 20100805
  23. IMIQUIMOD [Concomitant]
     Dosage: APPLY 5% TOPICAL Q 2 DAYS
     Route: 061
  24. PREDNISONE [Concomitant]
     Dosage: UNK
     Dates: end: 20100622

REACTIONS (3)
  - PLATELET COUNT DECREASED [None]
  - MYALGIA [None]
  - BASAL CELL CARCINOMA [None]
